FAERS Safety Report 17108292 (Version 1)
Quarter: 2019Q4

REPORT INFORMATION
  Report Type: Other
  Country: NL (occurrence: NL)
  Receive Date: 20191203
  Receipt Date: 20191203
  Transmission Date: 20200122
  Serious: Yes (Hospitalization, Other)
  Sender: FDA-Public Use
  Company Number: NL-NAPPMUNDI-GBR-2019-0073294

PATIENT
  Age: 9 Month
  Sex: Female
  Weight: 6 kg

DRUGS (1)
  1. NON-PMN THEOPHYLLINE [Suspect]
     Active Substance: THEOPHYLLINE ANHYDROUS
     Indication: LOWER RESPIRATORY TRACT INFECTION
     Dosage: 50 MG/KG, UNK RECEIVED TENFOLD LOADING DOSE OF THEOPHYLLINE (50 INSTEAD OF 5 MG/KG)
     Route: 042

REACTIONS (10)
  - Agitation [Recovered/Resolved]
  - Tachycardia [Recovered/Resolved]
  - Seizure [Recovered/Resolved]
  - Depressed level of consciousness [Recovered/Resolved]
  - Medication error [Unknown]
  - Toxicity to various agents [Recovered/Resolved]
  - Arrhythmia [Recovered/Resolved]
  - Respiratory alkalosis [Recovered/Resolved]
  - Vomiting [Recovered/Resolved]
  - Tachypnoea [Recovered/Resolved]
